FAERS Safety Report 8841206 (Version 1)
Quarter: 2012Q4

REPORT INFORMATION
  Report Type: 
  Country: FR (occurrence: FR)
  Receive Date: 20121015
  Receipt Date: 20121015
  Transmission Date: 20130627
  Serious: Yes (Hospitalization)
  Sender: FDA-Public Use
  Company Number: FR-ROCHE-1143955

PATIENT
  Age: 44 Year
  Sex: Male

DRUGS (4)
  1. VALIUM [Suspect]
     Indication: PRODUCT USED FOR UNKNOWN INDICATION
     Route: 048
     Dates: start: 20120803
  2. LOXAPAC [Suspect]
     Indication: PSYCHOTIC DISORDER
     Route: 048
     Dates: start: 20120803, end: 20120803
  3. ACAMPROSATE CALCIUM [Suspect]
     Indication: ALCOHOLISM
     Route: 048
     Dates: end: 20120803
  4. MIRTAZAPINE [Suspect]
     Indication: PRODUCT USED FOR UNKNOWN INDICATION
     Route: 048

REACTIONS (2)
  - Neutropenia [Recovered/Resolved]
  - Thrombocytopenia [Recovered/Resolved]
